FAERS Safety Report 19026185 (Version 1)
Quarter: 2021Q1

REPORT INFORMATION
  Report Type: Spontaneous
  Country: CH (occurrence: CH)
  Receive Date: 20210318
  Receipt Date: 20210318
  Transmission Date: 20210420
  Serious: Yes (Other)
  Sender: FDA-Public Use
  Company Number: CH-BAYER-2021-105991

PATIENT
  Age: 75 Year
  Sex: Male

DRUGS (1)
  1. ULTRAVIST [Suspect]
     Active Substance: IOPROMIDE
     Indication: COMPUTERISED TOMOGRAM ABDOMEN
     Dosage: 100 MG, UNK
     Route: 040
     Dates: start: 20210205, end: 20210205

REACTIONS (2)
  - Erythema [Unknown]
  - Pustule [Unknown]

NARRATIVE: CASE EVENT DATE: 20210205
